FAERS Safety Report 6147228-0 (Version None)
Quarter: 2009Q2

REPORT INFORMATION
  Report Type: 
  Country: None (occurrence: None)
  Receive Date: 20090408
  Receipt Date: 20071128
  Transmission Date: 20091009
  Serious: Yes (Other)
  Sender: FDA-Public Use
  Company Number: US-ASTRAZENECA-2006UW10685

PATIENT
  Age: 41 Year
  Sex: Female
  Weight: 75.7 kg

DRUGS (15)
  1. SEROQUEL [Suspect]
     Indication: DEPRESSION
     Dosage: 25MG-400MG
     Route: 048
     Dates: start: 20030901
  2. DARVOCET [Concomitant]
  3. LAMICTAL [Concomitant]
     Dates: start: 20060127, end: 20060401
  4. PREVACID [Concomitant]
  5. VITAMIN B6 [Concomitant]
  6. LEXAPRO [Concomitant]
  7. PERCOCET [Concomitant]
     Dates: end: 20050701
  8. AMITRIPTYLINE HYDROCHLORIDE [Concomitant]
  9. K DUR [Concomitant]
  10. KETOROLAC TROMETHAMINE [Concomitant]
  11. VITAMIN K [Concomitant]
  12. VISTARIL [Concomitant]
  13. HYZAAR [Concomitant]
  14. MOBIC [Concomitant]
  15. ASPIRIN [Concomitant]

REACTIONS (31)
  - ABDOMINAL PAIN [None]
  - AFFECTIVE DISORDER [None]
  - ALLERGY TO ARTHROPOD BITE [None]
  - ANAEMIA [None]
  - BLEEDING TIME PROLONGED [None]
  - BRONCHITIS [None]
  - CARPAL TUNNEL SYNDROME [None]
  - CHEST PAIN [None]
  - CONCUSSION [None]
  - CONFUSIONAL STATE [None]
  - CONSTIPATION [None]
  - CONTUSION [None]
  - DIABETES MELLITUS [None]
  - DYSPNOEA [None]
  - EXCORIATION [None]
  - FIBROMYALGIA [None]
  - FOOD CRAVING [None]
  - GASTRITIS [None]
  - LEUKOPENIA [None]
  - NEUROPATHY PERIPHERAL [None]
  - OEDEMA PERIPHERAL [None]
  - ORAL PAIN [None]
  - PAIN IN EXTREMITY [None]
  - PAIN IN JAW [None]
  - PANCREATITIS [None]
  - PLATELET COUNT DECREASED [None]
  - POST-TRAUMATIC HEADACHE [None]
  - TARDIVE DYSKINESIA [None]
  - THIRST [None]
  - TOOTH ABSCESS [None]
  - TOOTH INFECTION [None]
